FAERS Safety Report 13953832 (Version 1)
Quarter: 2017Q3

REPORT INFORMATION
  Report Type: Spontaneous
  Country: FR (occurrence: FR)
  Receive Date: 20170911
  Receipt Date: 20170911
  Transmission Date: 20171128
  Serious: Yes (Other)
  Sender: FDA-Public Use
  Company Number: PHHY2017FR133447

PATIENT
  Age: 66 Year
  Sex: Female

DRUGS (1)
  1. GLIVEC [Suspect]
     Active Substance: IMATINIB MESYLATE
     Indication: CHRONIC MYELOID LEUKAEMIA
     Dosage: 100 MG, BID
     Route: 048
     Dates: start: 2000

REACTIONS (3)
  - Gastric stenosis [Not Recovered/Not Resolved]
  - Weight decreased [Unknown]
  - Eating disorder [Unknown]
